FAERS Safety Report 24635078 (Version 1)
Quarter: 2024Q4

REPORT INFORMATION
  Report Type: Spontaneous
  Country: CA (occurrence: CA)
  Receive Date: 20241119
  Receipt Date: 20241119
  Transmission Date: 20250114
  Serious: Yes (Other)
  Sender: CSL BEHRING
  Company Number: CA-BEH-2024185543

PATIENT
  Age: 16 Year
  Sex: Female

DRUGS (6)
  1. ALBUREX [Suspect]
     Active Substance: ALBUMIN HUMAN
     Indication: Plasmapheresis
     Dosage: 1250 ML (SOLUTION INTAVENOUS)
     Route: 042
  2. AMPICILLIN [Concomitant]
     Active Substance: AMPICILLIN
  3. ATIVAN [Concomitant]
     Active Substance: LORAZEPAM
  4. CLOBAZAM [Concomitant]
     Active Substance: CLOBAZAM
     Dosage: TABLET
  5. KEPPRA [Concomitant]
     Active Substance: LEVETIRACETAM
     Dosage: TABLETS
  6. SOLU-MEDROL [Concomitant]
     Active Substance: METHYLPREDNISOLONE SODIUM SUCCINATE

REACTIONS (32)
  - Agitation [Unknown]
  - Allergic transfusion reaction [Unknown]
  - Anaphylactic reaction [Unknown]
  - Angioedema [Unknown]
  - Atelectasis [Unknown]
  - Bacterial infection [Unknown]
  - Blood pressure diastolic increased [Unknown]
  - Culture positive [Unknown]
  - Diarrhoea [Unknown]
  - Dyspnoea [Unknown]
  - Face oedema [Unknown]
  - Flushing [Unknown]
  - Gram stain positive [Unknown]
  - Haemoglobin increased [Unknown]
  - Heart rate increased [Unknown]
  - Lip oedema [Unknown]
  - Lung opacity [Unknown]
  - Nasal flaring [Unknown]
  - Oedema [Unknown]
  - Oxygen saturation decreased [Unknown]
  - Pleural effusion [Unknown]
  - Product contamination microbial [Unknown]
  - Pruritus [Unknown]
  - Rash [Unknown]
  - Respiratory rate decreased [Unknown]
  - Staphylococcus test positive [Unknown]
  - Tachycardia [Unknown]
  - Tachypnoea [Unknown]
  - Transfusion reaction [Unknown]
  - Urticaria [Unknown]
  - Use of accessory respiratory muscles [Unknown]
  - Wheezing [Unknown]
